FAERS Safety Report 6821772-2 (Version None)
Quarter: 2010Q3

REPORT INFORMATION
  Report Type: 
  Country: None (occurrence: None)
  Receive Date: 20100707
  Receipt Date: 20100707
  Transmission Date: 20110219
  Serious: Yes (Life-Threatening)
  Sender: FDA-Public Use
  Company Number: None

PATIENT
  Age: 36 Year
  Sex: Male
  Weight: 84 kg

DRUGS (2)
  1. GAMUNEX [Suspect]
     Indication: BRUTON'S AGAMMAGLOBULINAEMIA
     Dates: start: 20100630, end: 20100630
  2. GAMUNEX [Suspect]

REACTIONS (1)
  - HAEMOLYSIS [None]
